FAERS Safety Report 7632424-3 (Version None)
Quarter: 2011Q3

REPORT INFORMATION
  Report Type: 
  Country: None (occurrence: None)
  Receive Date: 20110725
  Receipt Date: 20100930
  Transmission Date: 20111222
  Serious: No
  Sender: FDA-Public Use
  Company Number: US-BRISTOL-MYERS SQUIBB COMPANY-15268733

PATIENT
  Age: 84 Year
  Sex: Male
  Weight: 98 kg

DRUGS (11)
  1. ADVAIR DISKUS 100/50 [Concomitant]
  2. FISH OIL [Concomitant]
  3. PROAIR HFA [Concomitant]
     Route: 055
  4. LIPITOR [Concomitant]
  5. DIGOXIN [Concomitant]
  6. CLARINEX [Concomitant]
  7. SULFAMETHOXAZOLE [Concomitant]
  8. COUMADIN [Suspect]
     Indication: ATRIAL FIBRILLATION
     Dosage: DOSAGE:STARTED 20YRS AGO
  9. PLAVIX [Concomitant]
  10. FUROSEMIDE [Concomitant]
  11. SPIRIVA [Concomitant]

REACTIONS (1)
  - PROTHROMBIN TIME PROLONGED [None]
